FAERS Safety Report 14368902 (Version 1)
Quarter: 2018Q1

REPORT INFORMATION
  Report Type: Spontaneous
  Country: US (occurrence: US)
  Receive Date: 20180109
  Receipt Date: 20180109
  Transmission Date: 20180509
  Serious: No
  Sender: FDA-Public Use
  Company Number: US-DRREDDYS-USA/USA/17/0087736

PATIENT
  Age: 28 Year
  Sex: Male
  Weight: 81.65 kg

DRUGS (2)
  1. HABITROL [Suspect]
     Active Substance: NICOTINE
     Indication: SMOKING CESSATION THERAPY
     Route: 062
     Dates: start: 20170207
  2. HABITROL [Suspect]
     Active Substance: NICOTINE
     Route: 062

REACTIONS (5)
  - Inappropriate schedule of drug administration [Unknown]
  - Drug effect increased [Unknown]
  - Unevaluable event [Unknown]
  - Treatment noncompliance [Unknown]
  - Drug dose omission [Unknown]
